FAERS Safety Report 21645068 (Version 1)
Quarter: 2022Q4

REPORT INFORMATION
  Report Type: Spontaneous
  Country: CH (occurrence: CH)
  Receive Date: 20221125
  Receipt Date: 20221125
  Transmission Date: 20230113
  Serious: Yes (Other)
  Sender: FDA-Public Use
  Company Number: None

PATIENT
  Age: 26 Year
  Sex: Female

DRUGS (7)
  1. DOXYCYCLINE [Suspect]
     Active Substance: DOXYCYCLINE
     Indication: Dirofilariasis
     Dosage: DOXYCYCLINE: 06/09/2020 TO 07/21/2020: ORAL 100 MG / DAY (LAST 2 WEEKS 50 MG / DAY) , UNIT DOSE :  1
     Route: 048
     Dates: start: 20200609, end: 20200706
  2. DOXYCYCLINE [Suspect]
     Active Substance: DOXYCYCLINE
     Dosage: DOXYCYCLINE: 06/09/2020 TO 07/21/2020: ORAL 100 MG / DAY (LAST 2 WEEKS 50 MG / DAY) , UNIT DOSE : 50
     Route: 048
     Dates: start: 20200707, end: 20200721
  3. ALBENDAZOLE [Suspect]
     Active Substance: ALBENDAZOLE
     Indication: Dirofilariasis
     Dosage: 1200 MILLIGRAM DAILY; ALBENDAZOLE: 08/05/2020 TO 08/25/2020: 1200 MG DAILY ORALLY , DURATION : 20 DA
     Route: 048
     Dates: start: 20200805, end: 20200825
  4. IVERMECTIN [Suspect]
     Active Substance: IVERMECTIN
     Indication: Dirofilariasis
     Dosage: IVERMECTIN: 09/09/2020 ORALLY 15 MG IN 4 DOSES (DAY 1,2,14,15) UNTIL ABOUT 06/2021; TOTALLY, UNIT DO
     Route: 048
     Dates: start: 20200909, end: 202106
  5. IBUPROFEN [Concomitant]
     Active Substance: IBUPROFEN
     Indication: Product used for unknown indication
     Dosage: IBUPROFEN 600MG , RESERVE (APPROX. 2X/WEEK) ; AS NECESSARY , FORM STRENGTH : 600 MG , UNIT DOSE : 60
     Route: 048
  6. VITAMIN D3 [Concomitant]
     Active Substance: CHOLECALCIFEROL
     Indication: Product used for unknown indication
     Dosage: VITAMIN D3 1000 I.E. , UNIT DOSE : 1000 IU
     Route: 048
  7. METFORMIN [Concomitant]
     Active Substance: METFORMIN HYDROCHLORIDE
     Indication: Product used for unknown indication
     Dosage: METFORMIN  850-0-500MG , UNIT DOSE : 1 DF , FREQUENCY TIME : 12 HOUR
     Route: 048

REACTIONS (5)
  - Headache [Not Recovered/Not Resolved]
  - Tinnitus [Not Recovered/Not Resolved]
  - Visual impairment [Not Recovered/Not Resolved]
  - Dysphagia [Not Recovered/Not Resolved]
  - Intracranial pressure increased [Recovered/Resolved]

NARRATIVE: CASE EVENT DATE: 20200101
